FAERS Safety Report 11690038 (Version 1)
Quarter: 2015Q4

REPORT INFORMATION
  Report Type: Spontaneous
  Country: US (occurrence: None)
  Receive Date: 20151030
  Receipt Date: 20151030
  Transmission Date: 20160304
  Serious: No
  Sender: FDA-Public Use
  Company Number: None

PATIENT
  Age: 14 Year
  Sex: Male
  Weight: 54.43 kg

DRUGS (3)
  1. AUVI-Q [Suspect]
     Active Substance: EPINEPHRINE
     Indication: FOOD ALLERGY
  2. AUVI-Q [Concomitant]
     Active Substance: EPINEPHRINE
  3. BENADRYL [Concomitant]
     Active Substance: DIPHENHYDRAMINE HYDROCHLORIDE

REACTIONS (1)
  - Product quality issue [None]

NARRATIVE: CASE EVENT DATE: 20151029
